FAERS Safety Report 8839998 (Version 1)
Quarter: 2012Q4

REPORT INFORMATION
  Report Type: Spontaneous
  Country: US (occurrence: None)
  Receive Date: 20121012
  Receipt Date: 20121012
  Transmission Date: 20130627
  Serious: Yes (Life-Threatening, Hospitalization)
  Sender: FDA-Public Use
  Company Number: None

PATIENT
  Age: 27 Year
  Sex: Female
  Weight: 54.43 kg

DRUGS (1)
  1. NUVARING [Suspect]
     Indication: BLEEDING MENSTRUAL HEAVY
     Route: 067
     Dates: start: 20120729, end: 20120903

REACTIONS (3)
  - Pulmonary embolism [None]
  - Heart rate increased [None]
  - Pulmonary thrombosis [None]
